FAERS Safety Report 8365549-8 (Version None)
Quarter: 2012Q2

REPORT INFORMATION
  Report Type: 
  Country: None (occurrence: None)
  Receive Date: 20120516
  Receipt Date: 20120509
  Transmission Date: 20120825
  Serious: Yes (Hospitalization, Other)
  Sender: FDA-Public Use
  Company Number: JP-PFIZER INC-2012112583

PATIENT
  Age: 43 Year
  Sex: Female

DRUGS (2)
  1. SULFASALAZINE [Suspect]
     Indication: COLITIS ULCERATIVE
     Dosage: 1000 MG, 3X/DAY
     Route: 048
     Dates: start: 20111206, end: 20111221
  2. RILMAZAFONE HYDROCHLORIDE [Concomitant]
     Dosage: UNK

REACTIONS (6)
  - OEDEMA [None]
  - PYREXIA [None]
  - URTICARIA [None]
  - DYSPNOEA [None]
  - PULMONARY CONGESTION [None]
  - PLEURAL EFFUSION [None]
